FAERS Safety Report 4587106-1 (Version None)
Quarter: 2005Q1

REPORT INFORMATION
  Report Type: 
  Country: None (occurrence: None)
  Receive Date: 20050215
  Receipt Date: 20050202
  Transmission Date: 20050727
  Serious: Yes (Other)
  Sender: FDA-Public Use
  Company Number: 2005024321

PATIENT
  Sex: Female

DRUGS (3)
  1. PROVERA [Suspect]
     Indication: HORMONE REPLACEMENT THERAPY
     Dates: start: 19881001, end: 19971201
  2. ESTROGENS CONJUGATED (ESTROGENS CONGUATED) [Suspect]
     Indication: HORMONE REPLACEMENT THERAPY
     Dates: start: 19881001, end: 19971201
  3. PROVELLA-14 (ESTROGENS CONJUGATED, MEDROXYPROGESTERONE ACETATE) [Suspect]
     Indication: HORMONE REPLACEMENT THERAPY
     Dates: start: 19971201

REACTIONS (1)
  - BREAST CANCER [None]
